FAERS Safety Report 24613870 (Version 1)
Quarter: 2024Q4

REPORT INFORMATION
  Report Type: Spontaneous
  Country: US (occurrence: None)
  Receive Date: 20241113
  Receipt Date: 20241113
  Transmission Date: 20250114
  Serious: Yes (Other)
  Sender: Public
  Company Number: None

PATIENT
  Age: 54 Year
  Sex: Female
  Weight: 52.3 kg

DRUGS (1)
  1. TRAZIMERA [Suspect]
     Active Substance: TRASTUZUMAB-QYYP
     Dates: start: 20241031, end: 20241031

REACTIONS (11)
  - Headache [None]
  - Brain fog [None]
  - Mental impairment [None]
  - Disturbance in attention [None]
  - Communication disorder [None]
  - Pruritus [None]
  - Pruritus [None]
  - Fatigue [None]
  - Decreased appetite [None]
  - Palpitations [None]
  - Nausea [None]

NARRATIVE: CASE EVENT DATE: 20241031
